FAERS Safety Report 5222965-0 (Version None)
Quarter: 2007Q1

REPORT INFORMATION
  Report Type: 
  Country: None (occurrence: None)
  Receive Date: 20070129
  Receipt Date: 20070117
  Transmission Date: 20070707
  Serious: Yes (Death, Other)
  Sender: FDA-Public Use
  Company Number: JP-PFIZER INC-2006137443

PATIENT
  Sex: Female

DRUGS (10)
  1. ALDACTONE [Suspect]
     Indication: ASCITES
     Route: 048
     Dates: start: 20061003, end: 20061113
  2. ALDACTONE [Suspect]
     Indication: OEDEMA
  3. TAKEPRON [Suspect]
     Indication: GASTRIC ULCER
     Route: 048
     Dates: start: 20061004, end: 20061111
  4. FUROSEMIDE [Concomitant]
     Indication: ASCITES
     Route: 042
     Dates: start: 20061003, end: 20061104
  5. FUROSEMIDE [Concomitant]
     Dosage: DAILY DOSE:20MG
     Route: 042
  6. FUROSEMIDE [Concomitant]
     Route: 048
     Dates: start: 20061105, end: 20061113
  7. KELNAC [Concomitant]
     Route: 048
  8. LIVACT [Concomitant]
     Indication: HYPOALBUMINAEMIA
     Route: 048
     Dates: start: 20061016, end: 20061111
  9. SOLUDACTONE [Concomitant]
     Indication: ASCITES
     Route: 042
     Dates: start: 20061003, end: 20061104
  10. SOLUDACTONE [Concomitant]
     Indication: OEDEMA
     Dosage: DAILY DOSE:400MG
     Route: 042
     Dates: start: 20061114

REACTIONS (3)
  - CONDITION AGGRAVATED [None]
  - HEPATIC FUNCTION ABNORMAL [None]
  - SHOCK HAEMORRHAGIC [None]
